FAERS Safety Report 14377809 (Version 1)
Quarter: 2018Q1

REPORT INFORMATION
  Report Type: Report from Study
  Country: PT (occurrence: PT)
  Receive Date: 20180111
  Receipt Date: 20180111
  Transmission Date: 20180509
  Serious: Yes (Other)
  Sender: FDA-Public Use
  Company Number: PT-GILEAD-2016-0222413

PATIENT
  Age: 70 Year
  Sex: Female
  Weight: 54 kg

DRUGS (11)
  1. IDELALISIB [Suspect]
     Active Substance: IDELALISIB
     Indication: CHROMOSOMAL DELETION
     Dosage: 150 MG, BID
     Route: 048
     Dates: start: 20160607, end: 20160629
  2. IDELALISIB [Suspect]
     Active Substance: IDELALISIB
     Dosage: 100 MG, BID
     Route: 048
     Dates: start: 20160714, end: 20160830
  3. IDELALISIB [Suspect]
     Active Substance: IDELALISIB
     Dosage: 100 MG, BID
     Route: 048
  4. IDELALISIB [Suspect]
     Active Substance: IDELALISIB
     Indication: CHRONIC LYMPHOCYTIC LEUKAEMIA
     Dosage: 150 MG, BID
     Route: 048
     Dates: start: 20150601, end: 20160314
  5. ESCITALOPRAM [Concomitant]
     Active Substance: ESCITALOPRAM OXALATE
     Dosage: 10 MG, UNK
     Route: 048
     Dates: start: 2008
  6. FLUVASTATIN                        /01224502/ [Concomitant]
     Active Substance: FLUVASTATIN SODIUM
     Dosage: 80 MG, UNK
     Route: 048
     Dates: start: 2008
  7. COTRIMOXAZOL [Concomitant]
     Active Substance: SULFAMETHOXAZOLE\TRIMETHOPRIM
     Indication: ANTIFUNGAL PROPHYLAXIS
     Dosage: 96 MG, UNK
     Route: 048
     Dates: start: 20150603
  8. RITUXIMAB. [Suspect]
     Active Substance: RITUXIMAB
     Indication: CHRONIC LYMPHOCYTIC LEUKAEMIA
     Route: 065
  9. ALPRAZOLAM. [Concomitant]
     Active Substance: ALPRAZOLAM
     Dosage: 0.5 MG, UNK
     Dates: start: 2007
  10. PERINDOPRIL [Concomitant]
     Active Substance: PERINDOPRIL
     Dosage: 5 MG, UNK
     Route: 048
     Dates: start: 2007
  11. AMLODIPINE [Concomitant]
     Active Substance: AMLODIPINE BESYLATE
     Dosage: 5 MG, UNK
     Route: 048
     Dates: start: 2007

REACTIONS (6)
  - Blastic plasmacytoid dendritic cell neoplasia [Not Recovered/Not Resolved]
  - Pneumonia [Recovering/Resolving]
  - Skin lesion [Unknown]
  - Neutropenia [Recovered/Resolved]
  - Disease progression [Not Recovered/Not Resolved]
  - Febrile neutropenia [Recovered/Resolved]

NARRATIVE: CASE EVENT DATE: 20160629
